APPROVED DRUG PRODUCT: PREVACID
Active Ingredient: LANSOPRAZOLE
Strength: 15MG **Federal Register determination that product was not discontinued or withdrawn for safety or effectiveness reasons**
Dosage Form/Route: CAPSULE, DELAYED REL PELLETS;ORAL
Application: N020406 | Product #001
Applicant: TAKEDA PHARMACEUTICALS USA INC
Approved: May 10, 1995 | RLD: Yes | RS: No | Type: DISCN